FAERS Safety Report 16166116 (Version 1)
Quarter: 2019Q2

REPORT INFORMATION
  Report Type: Spontaneous
  Country: DE (occurrence: DE)
  Receive Date: 20190406
  Receipt Date: 20190406
  Transmission Date: 20190711
  Serious: Yes (Hospitalization)
  Sender: FDA-Public Use
  Company Number: DE-ACCORD-118252

PATIENT
  Age: 17 Year
  Sex: Male
  Weight: 67 kg

DRUGS (6)
  1. CIATYL TROPFEN [Concomitant]
     Dosage: DAILY DOSE: 24 GTT DROP(S) EVERY DAYS
     Route: 048
  2. RISPERIDONE. [Suspect]
     Active Substance: RISPERIDONE
     Dosage: DAILY DOSE: 3 MG MILLGRAM(S) EVERY DAYS
     Route: 048
     Dates: start: 20180715, end: 20180715
  3. PIPAMPERONE [Concomitant]
     Active Substance: PIPAMPERONE
     Dosage: DAILY DOSE: 120 MG MILLGRAM(S) EVERY DAYS
     Route: 048
  4. ARIPIPRAZOLE. [Suspect]
     Active Substance: ARIPIPRAZOLE
     Route: 048
     Dates: start: 20180715, end: 20180715
  5. QUETIAPINE. [Suspect]
     Active Substance: QUETIAPINE
     Route: 048
     Dates: start: 20180715, end: 20180715
  6. ATROPA BELLADONNA [Concomitant]
     Active Substance: ATROPA BELLADONNA\HOMEOPATHICS
     Dosage: DAILY DOSE: 27 GTT DROP(S) EVERY DAYS
     Route: 048

REACTIONS (4)
  - Seizure [Recovered/Resolved]
  - Wrong product administered [Unknown]
  - Product dose omission [Unknown]
  - Product administration error [Unknown]

NARRATIVE: CASE EVENT DATE: 20180715
